FAERS Safety Report 10409588 (Version 1)
Quarter: 2014Q3

REPORT INFORMATION
  Report Type: Spontaneous
  Country: US (occurrence: US)
  Receive Date: 20140826
  Receipt Date: 20140826
  Transmission Date: 20150326
  Serious: No
  Sender: FDA-Public Use
  Company Number: US-BAUSCH-BL-2013-004733

PATIENT
  Sex: Male

DRUGS (1)
  1. CROMOLYN SODIUM NASAL SOLUTION USP [Suspect]
     Active Substance: CROMOLYN SODIUM
     Indication: PRODUCT USED FOR UNKNOWN INDICATION
     Dosage: UNKNOWN DOSE; NASAL
     Route: 045

REACTIONS (4)
  - Genital rash [Unknown]
  - Genital erythema [Unknown]
  - Rash erythematous [Unknown]
  - Expired product administered [Unknown]

NARRATIVE: CASE EVENT DATE: 201209
